FAERS Safety Report 24366088 (Version 1)
Quarter: 2024Q3

REPORT INFORMATION
  Report Type: Spontaneous
  Country: US (occurrence: None)
  Receive Date: 20240925
  Receipt Date: 20240925
  Transmission Date: 20241016
  Serious: Yes (Other)
  Sender: Public
  Company Number: None

PATIENT
  Sex: Female

DRUGS (11)
  1. ORENCIA [Suspect]
     Active Substance: ABATACEPT
     Indication: Rheumatoid arthritis
     Route: 058
     Dates: start: 20220412
  2. ERRIN [Concomitant]
     Active Substance: NORETHINDRONE
  3. ESOMEPRAZOLE MAGNESIUM [Concomitant]
     Active Substance: ESOMEPRAZOLE MAGNESIUM
  4. FOLIC ACID TAB [Concomitant]
  5. HUMIRA [Concomitant]
     Active Substance: ADALIMUMAB
  6. HYDROXYZINE HYDROCHLORIDE [Concomitant]
     Active Substance: HYDROXYZINE HYDROCHLORIDE
  7. LOSARTAN POT TAB [Concomitant]
  8. METFORMIN TAB [Concomitant]
  9. METHOTREXATE [Concomitant]
     Active Substance: METHOTREXATE
  10. METOPROL SUC TAB [Concomitant]
  11. MOUNJARO INJ 2.5/0.5 [Concomitant]

REACTIONS (2)
  - Procedural pain [None]
  - Intentional dose omission [None]
